FAERS Safety Report 7131135-0 (Version None)
Quarter: 2010Q4

REPORT INFORMATION
  Report Type: 
  Country: None (occurrence: None)
  Receive Date: 20101124
  Receipt Date: 20101124
  Transmission Date: 20110411
  Serious: Yes (Other)
  Sender: FDA-Public Use
  Company Number: None

PATIENT
  Age: 65 Year
  Sex: Female
  Weight: 83.4619 kg

DRUGS (2)
  1. BYETTA [Suspect]
     Indication: DIABETES MELLITUS
     Dosage: 5MCG BID SQ
     Route: 058
     Dates: start: 20100913, end: 20101014
  2. BYETTA [Suspect]
     Indication: DIABETES MELLITUS
     Dosage: 5MCG BID SQ
     Route: 058
     Dates: start: 20101018, end: 20101109

REACTIONS (10)
  - ABDOMINAL PAIN UPPER [None]
  - DECREASED APPETITE [None]
  - GASTRIC ULCER [None]
  - HYPOGLYCAEMIA [None]
  - IMPAIRED GASTRIC EMPTYING [None]
  - INCORRECT DRUG ADMINISTRATION DURATION [None]
  - MICROALBUMINURIA [None]
  - NEOPLASM MALIGNANT [None]
  - VOMITING [None]
  - WEIGHT DECREASED [None]
